FAERS Safety Report 15320831 (Version 1)
Quarter: 2018Q4

REPORT INFORMATION
  Report Type: Spontaneous
  Country: SE (occurrence: SE)
  Receive Date: 20180827
  Receipt Date: 20180827
  Transmission Date: 20190204
  Serious: Yes (Other)
  Sender: FDA-Public Use
  Company Number: SE-TEVA-2018-SE-946136

PATIENT
  Sex: Male

DRUGS (1)
  1. METOTREXAT ACTAVIS [Suspect]
     Active Substance: METHOTREXATE SODIUM
     Indication: RHEUMATIC DISORDER
     Route: 065
     Dates: end: 20040722

REACTIONS (2)
  - Respiratory depression [Unknown]
  - Obstructive airways disorder [Unknown]
